FAERS Safety Report 23970882 (Version 2)
Quarter: 2024Q3

REPORT INFORMATION
  Report Type: Spontaneous
  Country: US (occurrence: GB)
  Receive Date: 20240613
  Receipt Date: 20240715
  Transmission Date: 20241016
  Serious: Yes (Other)
  Sender: TEVA
  Company Number: US-TEVA-VS-3206948

PATIENT
  Age: 26 Year
  Sex: Male

DRUGS (2)
  1. DESVENLAFAXINE [Suspect]
     Active Substance: DESVENLAFAXINE
     Indication: Generalised anxiety disorder
     Route: 065
  2. ARIPIPRAZOLE [Suspect]
     Active Substance: ARIPIPRAZOLE
     Indication: Generalised anxiety disorder
     Route: 065

REACTIONS (2)
  - Weight increased [Unknown]
  - Glucose tolerance impaired [Unknown]
